FAERS Safety Report 5885102-5 (Version None)
Quarter: 2008Q3

REPORT INFORMATION
  Report Type: 
  Country: None (occurrence: None)
  Receive Date: 20080916
  Receipt Date: 20080902
  Transmission Date: 20090109
  Serious: Yes (Other)
  Sender: FDA-Public Use
  Company Number: US-PFIZER INC-2008073808

PATIENT
  Sex: Female
  Weight: 52.2 kg

DRUGS (8)
  1. ZOLOFT [Interacting]
     Indication: DEPRESSION
     Route: 048
     Dates: start: 19930101
  2. NORVASC [Suspect]
  3. LIPITOR [Suspect]
     Indication: BLOOD CHOLESTEROL INCREASED
  4. LEVOTHYROXINE SODIUM [Interacting]
     Indication: HYPOTHYROIDISM
     Dates: start: 20060101
  5. TOPROL-XL [Suspect]
     Indication: HYPERTENSION
  6. THIAZIDES [Suspect]
  7. PREMARIN [Concomitant]
     Dates: start: 19790101
  8. FELDENE [Concomitant]
     Indication: ARTHRITIS
     Dates: start: 19820101

REACTIONS (9)
  - BLOOD CHOLESTEROL INCREASED [None]
  - DRUG INTERACTION [None]
  - DRY SKIN [None]
  - HYPERTENSION [None]
  - HYPOTHYROIDISM [None]
  - JOINT SWELLING [None]
  - MENTAL IMPAIRMENT [None]
  - OEDEMA PERIPHERAL [None]
  - PRURITUS [None]
